FAERS Safety Report 17591486 (Version 1)
Quarter: 2020Q1

REPORT INFORMATION
  Report Type: Spontaneous
  Country: US (occurrence: US)
  Receive Date: 20200327
  Receipt Date: 20200327
  Transmission Date: 20200409
  Serious: No
  Sender: FDA-Public Use
  Company Number: US-ASTRAZENECA-2020SE31264

PATIENT
  Sex: Female

DRUGS (3)
  1. FASENRA [Suspect]
     Active Substance: BENRALIZUMAB
     Indication: ASTHMA
     Route: 058
  2. FASENRA [Suspect]
     Active Substance: BENRALIZUMAB
     Indication: ASTHMA
     Route: 058
  3. FASENRA [Suspect]
     Active Substance: BENRALIZUMAB
     Indication: ASTHMA
     Route: 058
     Dates: start: 20191220

REACTIONS (9)
  - Abdominal pain [Not Recovered/Not Resolved]
  - Posture abnormal [Unknown]
  - Dysphagia [Not Recovered/Not Resolved]
  - Carpal tunnel syndrome [Not Recovered/Not Resolved]
  - Dysphonia [Unknown]
  - Constipation [Not Recovered/Not Resolved]
  - Dizziness [Recovering/Resolving]
  - Oedema peripheral [Recovering/Resolving]
  - Pain [Recovering/Resolving]
